FAERS Safety Report 12689286 (Version 1)
Quarter: 2016Q3

REPORT INFORMATION
  Report Type: Spontaneous
  Country: GB (occurrence: GB)
  Receive Date: 20160826
  Receipt Date: 20160826
  Transmission Date: 20161109
  Serious: Yes (Hospitalization)
  Sender: FDA-Public Use
  Company Number: GB-JNJFOC-20160816546

PATIENT
  Age: 55 Year
  Sex: Female
  Weight: 95.25 kg

DRUGS (12)
  1. ANGITIL [Concomitant]
     Dosage: DOSE: 120 (UNITS UNSPECIFIED)
     Route: 065
  2. ATORVASTATIN [Concomitant]
     Active Substance: ATORVASTATIN
     Dosage: DOSE: 40.0 (UNITS UNSPECIFIED)
     Route: 065
  3. LANTUS [Concomitant]
     Active Substance: INSULIN GLARGINE
     Dosage: DOSE: 46.0 (UNITS UNSPECIFIED)
     Route: 065
  4. ASPRIN [Concomitant]
     Active Substance: ASPIRIN
     Dosage: DOSE: 75.0 (UNITS UNSPECIFIED)
     Route: 065
  5. METFORMIN [Concomitant]
     Active Substance: METFORMIN HYDROCHLORIDE
     Dosage: DOSE: 500.0 (UNITS UNSPECIFIED)
     Route: 065
  6. APIDRA [Concomitant]
     Active Substance: INSULIN GLULISINE
     Dosage: DOSE: 16.0 (UNITS UNSPECIFIED)
     Route: 065
  7. PARACETAMOL [Concomitant]
     Active Substance: ACETAMINOPHEN
     Indication: PAIN
     Dosage: DOSAGE: UPTO 8 DAILY
     Route: 065
  8. LORATADINE. [Concomitant]
     Active Substance: LORATADINE
     Dosage: DOSE: 10.0 (UNITS UNSPECIFIED)
     Route: 065
  9. TRAMADOL HYDROCHLORIDE. [Concomitant]
     Active Substance: TRAMADOL HYDROCHLORIDE
     Indication: PAIN
     Dosage: DOSE: 50.0 (UNITS UNSPECIFIED); UPTO 8 DAILY
     Route: 065
  10. ZOMORPH [Concomitant]
     Active Substance: MORPHINE SULFATE
     Indication: PAIN
     Dosage: DOSE: 10.0 (UNITS UNSPECIFIED); UPTO 2 DAILY
     Route: 065
  11. INVOKANA [Suspect]
     Active Substance: CANAGLIFLOZIN
     Indication: ABNORMAL WEIGHT GAIN
     Dosage: DOSE: 100.0 (UNITS UNSPECIFIED)
     Route: 065
     Dates: start: 20150519, end: 20150618
  12. BENDROFLUAZIDE [Concomitant]
     Active Substance: BENDROFLUMETHIAZIDE
     Dosage: DOSE: 2.5 (UNITS UNSPECIFIED)
     Route: 065

REACTIONS (2)
  - Product use issue [Unknown]
  - Gouty arthritis [Recovered/Resolved with Sequelae]

NARRATIVE: CASE EVENT DATE: 20150519
